FAERS Safety Report 5515341-4 (Version None)
Quarter: 2007Q4

REPORT INFORMATION
  Report Type: 
  Country: None (occurrence: None)
  Receive Date: 20071109
  Receipt Date: 20071102
  Transmission Date: 20080405
  Serious: Yes (Hospitalization)
  Sender: FDA-Public Use
  Company Number: 2007BI022370

PATIENT
  Age: 55 Year
  Sex: Female
  Weight: 74.8435 kg

DRUGS (4)
  1. AVONEX [Suspect]
     Indication: MULTIPLE SCLEROSIS
     Dosage: 30 UG; QW; IM
     Route: 030
     Dates: start: 20060101
  2. METFORMIN HYDROCHLORIDE [Concomitant]
  3. CADUET [Concomitant]
  4. FLU SHOT [Concomitant]

REACTIONS (3)
  - CORONARY ARTERY OCCLUSION [None]
  - HEART RATE INCREASED [None]
  - MYOCARDIAL INFARCTION [None]
